FAERS Safety Report 4413711-9 (Version None)
Quarter: 2004Q2

REPORT INFORMATION
  Report Type: 
  Country: None (occurrence: None)
  Receive Date: 20040630
  Receipt Date: 20040302
  Transmission Date: 20050107
  Serious: No
  Sender: FDA-Public Use
  Company Number: 04P-163-0251892-00

PATIENT
  Age: 52 Year
  Sex: Female

DRUGS (9)
  1. HUMIRA [Suspect]
     Indication: RHEUMATOID ARTHRITIS
     Dosage: 40 MG, 1 IN 2 D, SUBCUTANEOUS
     Route: 058
     Dates: start: 20040101, end: 20040101
  2. ALBUTEROL SULFATE [Concomitant]
  3. SERETIDE MITE [Concomitant]
  4. THEOPHYLLINE [Concomitant]
  5. LEVOTHYROXINE SODIUM [Concomitant]
  6. PREDNISONE [Concomitant]
  7. OMEPRAZOLE [Concomitant]
  8. UNSPECIFIED [Concomitant]
  9. FOLINIC ACID [Concomitant]

REACTIONS (3)
  - CONDITION AGGRAVATED [None]
  - DIARRHOEA [None]
  - ORAL FUNGAL INFECTION [None]
